FAERS Safety Report 25441972 (Version 2)
Quarter: 2025Q4

REPORT INFORMATION
  Report Type: Spontaneous
  Country: CN (occurrence: CN)
  Receive Date: 20250616
  Receipt Date: 20251020
  Transmission Date: 20260117
  Serious: Yes (Death, Hospitalization)
  Sender: NOVARTIS
  Company Number: CN-002147023-NVSC2025CN094954

PATIENT
  Age: 81 Year
  Sex: Male

DRUGS (1)
  1. GLIVEC [Suspect]
     Active Substance: IMATINIB MESYLATE
     Indication: Chronic myeloid leukaemia
     Dosage: 400 MG
     Route: 048
     Dates: start: 20140110

REACTIONS (2)
  - Death [Fatal]
  - Pneumothorax [Unknown]
